FAERS Safety Report 5728265-4 (Version None)
Quarter: 2008Q2

REPORT INFORMATION
  Report Type: 
  Country: None (occurrence: None)
  Receive Date: 20080506
  Receipt Date: 20080424
  Transmission Date: 20081010
  Serious: Yes (Other)
  Sender: FDA-Public Use
  Company Number: US-JNJFOC-20080105813

PATIENT
  Sex: Male
  Weight: 59.88 kg

DRUGS (2)
  1. INVEGA [Suspect]
     Indication: SCHIZOAFFECTIVE DISORDER
  2. LEXAPRO [Suspect]
     Indication: DRUG USE FOR UNKNOWN INDICATION

REACTIONS (1)
  - ANAPHYLACTIC REACTION [None]
